FAERS Safety Report 10160642 (Version 1)
Quarter: 2014Q2

REPORT INFORMATION
  Report Type: Spontaneous
  Country: US (occurrence: None)
  Receive Date: 20140507
  Receipt Date: 20140507
  Transmission Date: 20141212
  Serious: Yes (Other)
  Sender: FDA-Public Use
  Company Number: None

PATIENT
  Age: 77 Year
  Sex: Female
  Weight: 50.35 kg

DRUGS (4)
  1. PROLIA [Suspect]
     Indication: OSTEOPOROSIS
     Route: 042
     Dates: start: 20140206, end: 20140207
  2. SYNTHROID [Concomitant]
  3. VASOTEC [Concomitant]
  4. XANAX [Concomitant]

REACTIONS (11)
  - Headache [None]
  - Pyrexia [None]
  - Pain in extremity [None]
  - Pain in extremity [None]
  - Myalgia [None]
  - Bone pain [None]
  - Back pain [None]
  - Blood blister [None]
  - Swollen tongue [None]
  - Bronchitis [None]
  - Tremor [None]
